FAERS Safety Report 24579537 (Version 6)
Quarter: 2025Q1

REPORT INFORMATION
  Report Type: Spontaneous
  Country: AR (occurrence: AR)
  Receive Date: 20241105
  Receipt Date: 20250127
  Transmission Date: 20250409
  Serious: Yes (Other)
  Sender: MYLAN
  Company Number: AR-MYLANLABS-2024M1097249

PATIENT
  Age: 35 Year
  Sex: Male

DRUGS (1)
  1. CLOZAPINE [Suspect]
     Active Substance: CLOZAPINE
     Indication: Product used for unknown indication
     Route: 065
     Dates: start: 200602

REACTIONS (4)
  - Neutropenia [Recovered/Resolved]
  - Eosinophil count increased [Not Recovered/Not Resolved]
  - Lymphocyte count increased [Recovering/Resolving]
  - Monocyte count increased [Recovered/Resolved]

NARRATIVE: CASE EVENT DATE: 20241023
